FAERS Safety Report 8476345-5 (Version None)
Quarter: 2012Q2

REPORT INFORMATION
  Report Type: 
  Country: None (occurrence: None)
  Receive Date: 20120619
  Receipt Date: 20120608
  Transmission Date: 20120825
  Serious: Yes (Other)
  Sender: FDA-Public Use
  Company Number: 2012SP031415

PATIENT
  Age: 27 Year
  Sex: Male
  Weight: 49 kg

DRUGS (11)
  1. PEG-INTRON [Suspect]
     Indication: HEPATITIS C
     Dosage: 1.5 MCG/KG;QW;SC
     Route: 058
     Dates: start: 20120214
  2. TELAVIC (TELAPREVIR) (INVESTIGATIONAL DRUG) [Suspect]
     Indication: HEPATITIS C
     Dosage: 2250 MG;QD;PO, 1500 MG;QD;PO
     Route: 048
     Dates: start: 20120214, end: 20120219
  3. TELAVIC (TELAPREVIR) (INVESTIGATIONAL DRUG) [Suspect]
     Indication: HEPATITIS C
     Dosage: 2250 MG;QD;PO, 1500 MG;QD;PO
     Route: 048
     Dates: start: 20120220, end: 20120508
  4. REBAMIPIDE [Concomitant]
  5. MIYA-BM [Concomitant]
  6. BETAMETHASONE SODIUM PHOSPHATE [Concomitant]
  7. CONFATANIN [Concomitant]
  8. PURSENNID /00142207/ [Concomitant]
  9. REBETOL [Suspect]
     Indication: HEPATITIS C
     Dosage: 600 MG;QD;PO, 400 MG;QD;PO, 600 MG;QD;PO
     Route: 048
     Dates: start: 20120307, end: 20120430
  10. REBETOL [Suspect]
     Indication: HEPATITIS C
     Dosage: 600 MG;QD;PO, 400 MG;QD;PO, 600 MG;QD;PO
     Route: 048
     Dates: start: 20120501
  11. REBETOL [Suspect]
     Indication: HEPATITIS C
     Dosage: 600 MG;QD;PO, 400 MG;QD;PO, 600 MG;QD;PO
     Route: 048
     Dates: start: 20120214, end: 20120306

REACTIONS (17)
  - PSYCHOSOMATIC DISEASE [None]
  - DECREASED APPETITE [None]
  - CHILLS [None]
  - WEIGHT DECREASED [None]
  - PRURITUS GENERALISED [None]
  - CONSTIPATION [None]
  - ABDOMINAL DISTENSION [None]
  - DRUG ERUPTION [None]
  - HYPERURICAEMIA [None]
  - PYREXIA [None]
  - IRRITABILITY [None]
  - MALAISE [None]
  - NAUSEA [None]
  - VISUAL ACUITY REDUCED [None]
  - DYSPNOEA [None]
  - CARDIAC MURMUR [None]
  - SOMNOLENCE [None]
